FAERS Safety Report 15225212 (Version 4)
Quarter: 2019Q3

REPORT INFORMATION
  Report Type: Report from Study
  Country: JP (occurrence: JP)
  Receive Date: 20180801
  Receipt Date: 20190910
  Transmission Date: 20191004
  Serious: Yes (Hospitalization, Other)
  Sender: FDA-Public Use
  Company Number: JP-ROCHE-2161152

PATIENT
  Age: 22 Year
  Sex: Male
  Weight: 59 kg

DRUGS (44)
  1. CERTICAN [Suspect]
     Active Substance: EVEROLIMUS
     Indication: PROPHYLAXIS AGAINST TRANSPLANT REJECTION
     Dosage: DOSE INTERVAL UNCERTAINTY
     Route: 048
     Dates: start: 20171030, end: 20171110
  2. PENTASA [Concomitant]
     Active Substance: MESALAMINE
     Indication: CHOLANGITIS SCLEROSING
     Dosage: DOSE INTERVAL UNCERTAINTY
     Route: 054
  3. VICCILLIN [AMPICILLIN] [Concomitant]
     Indication: INFECTION PROPHYLAXIS
     Dosage: DOSE INTERVAL UNCERTAINTY
     Route: 042
     Dates: start: 20171006, end: 20171009
  4. MYCOPHENOLATE MOFETIL. [Suspect]
     Active Substance: MYCOPHENOLATE MOFETIL
     Dosage: DOSE INTERVAL UNCERTAINTY
     Route: 048
     Dates: start: 20171122, end: 20180307
  5. CERTICAN [Suspect]
     Active Substance: EVEROLIMUS
     Dosage: DOSE INTERVAL UNCERTAINTY
     Route: 048
     Dates: start: 20171120, end: 20171121
  6. CLAFORAN [Concomitant]
     Active Substance: CEFOTAXIME SODIUM
     Indication: INFECTION PROPHYLAXIS
     Route: 042
     Dates: start: 20171006, end: 20171010
  7. VALIXA [Concomitant]
     Active Substance: VALGANCICLOVIR
     Indication: INFECTION PROPHYLAXIS
     Dosage: DOSE INTERVAL UNCERTAINTY
     Route: 048
     Dates: start: 20171117, end: 20171120
  8. WYSTAL [Concomitant]
     Active Substance: CEFOPERAZONE SODIUM\SULBACTAM SODIUM
     Indication: INFECTION PROPHYLAXIS
     Dosage: DOSE INTERVAL UNCERTAINTY
     Route: 042
     Dates: start: 20171121, end: 20171124
  9. WARFARIN [Concomitant]
     Active Substance: WARFARIN
     Indication: COLITIS ULCERATIVE
     Dosage: DOSE INTERVAL UNCERTAINTY
     Route: 048
     Dates: start: 20171024
  10. SOL-MELCORT [Suspect]
     Active Substance: METHYLPREDNISOLONE SODIUM SUCCINATE
     Dosage: DOSE INTERVAL UNCERTAINTY
     Route: 042
     Dates: start: 20171125, end: 20171127
  11. SOLU-CORTEF [Suspect]
     Active Substance: HYDROCORTISONE SODIUM SUCCINATE
     Dosage: DOSE INTERVAL UNCERTAINTY
     Route: 042
     Dates: start: 20171023, end: 20171023
  12. DENOSINE [GANCICLOVIR] [Concomitant]
     Active Substance: GANCICLOVIR
     Indication: INFECTION PROPHYLAXIS
     Route: 041
     Dates: start: 20171031, end: 20171116
  13. MYCOPHENOLATE MOFETIL. [Suspect]
     Active Substance: MYCOPHENOLATE MOFETIL
     Dosage: DOSE INTERVAL UNCERTAINTY
     Route: 048
     Dates: start: 20171007, end: 20171102
  14. PREDNISOLONE. [Suspect]
     Active Substance: PREDNISOLONE
     Indication: LIVER TRANSPLANT
     Dosage: DOSE INTERVAL UNCERTAINTY
     Route: 048
     Dates: start: 20171013, end: 20171102
  15. CERTICAN [Suspect]
     Active Substance: EVEROLIMUS
     Dosage: DOSE INTERVAL UNCERTAINTY
     Route: 048
     Dates: start: 20171111, end: 20171114
  16. CERTICAN [Suspect]
     Active Substance: EVEROLIMUS
     Dosage: DOSE INTERVAL UNCERTAINTY
     Route: 048
     Dates: start: 20171122, end: 20171125
  17. CEFMETAZOLE SODIUM [Concomitant]
     Active Substance: CEFMETAZOLE SODIUM
     Indication: INFECTION PROPHYLAXIS
     Dosage: DOSE INTERVAL UNCERTAINTY
     Route: 042
     Dates: start: 20171107, end: 20171109
  18. TACROLIMUS. [Suspect]
     Active Substance: TACROLIMUS
     Route: 048
     Dates: start: 20171012, end: 20171030
  19. SOL-MELCORT [Suspect]
     Active Substance: METHYLPREDNISOLONE SODIUM SUCCINATE
     Indication: LIVER TRANSPLANT
     Dosage: DOSE INTERVAL UNCERTAINTY
     Route: 042
     Dates: start: 20171007, end: 20171012
  20. SOL-MELCORT [Suspect]
     Active Substance: METHYLPREDNISOLONE SODIUM SUCCINATE
     Dosage: DOSE INTERVAL UNCERTAINTY
     Route: 042
     Dates: start: 20171014, end: 20171015
  21. SOL-MELCORT [Suspect]
     Active Substance: METHYLPREDNISOLONE SODIUM SUCCINATE
     Dosage: DOSE INTERVAL UNCERTAINTY
     Route: 042
     Dates: start: 20171016, end: 20171016
  22. SOLU-CORTEF [Suspect]
     Active Substance: HYDROCORTISONE SODIUM SUCCINATE
     Indication: LIVER TRANSPLANT
     Dosage: DOSE INTERVAL UNCERTAINTY
     Route: 042
     Dates: start: 20171013, end: 20171013
  23. CERTICAN [Suspect]
     Active Substance: EVEROLIMUS
     Dosage: DOSE INTERVAL UNCERTAINTY
     Route: 048
     Dates: start: 20171129, end: 20171225
  24. CERTICAN [Suspect]
     Active Substance: EVEROLIMUS
     Dosage: DOSE INTERVAL UNCERTAINTY
     Route: 048
     Dates: start: 20180128
  25. URSODEOXYCHOLIC ACID [Concomitant]
     Active Substance: URSODIOL
     Indication: CHOLANGITIS SCLEROSING
     Dosage: DOSE INTERVAL UNCERTAINTY
     Route: 048
  26. BACTRAMIN [Concomitant]
     Active Substance: SULFAMETHOXAZOLE\TRIMETHOPRIM
     Indication: INFECTION PROPHYLAXIS
     Dosage: DOSE INTERVAL UNCERTAINTY
     Route: 048
     Dates: start: 20171013
  27. VALACICLOVIR [Concomitant]
     Active Substance: VALACYCLOVIR HYDROCHLORIDE
     Indication: INFECTION PROPHYLAXIS
     Dosage: DOSE INTERVAL UNCERTAINTY
     Route: 048
     Dates: start: 20171013
  28. TACROLIMUS. [Suspect]
     Active Substance: TACROLIMUS
     Route: 048
     Dates: start: 20171031
  29. SOL-MELCORT [Suspect]
     Active Substance: METHYLPREDNISOLONE SODIUM SUCCINATE
     Dosage: DOSE INTERVAL UNCERTAINTY
     Route: 042
     Dates: start: 20171026, end: 20171027
  30. PREDNISOLONE. [Suspect]
     Active Substance: PREDNISOLONE
     Dosage: DOSE INTERVAL UNCERTAINTY
     Route: 048
     Dates: start: 20171103
  31. FUNGUARD [Concomitant]
     Active Substance: MICAFUNGIN SODIUM
     Indication: INFECTION PROPHYLAXIS
     Route: 042
     Dates: start: 20171007, end: 20171124
  32. MYCOPHENOLATE MOFETIL. [Suspect]
     Active Substance: MYCOPHENOLATE MOFETIL
     Dosage: DOSE INTERVAL UNCERTAINTY
     Route: 048
     Dates: start: 20180308, end: 20180323
  33. TACROLIMUS. [Suspect]
     Active Substance: TACROLIMUS
     Dosage: DOSAGE WAS UNCERTAIN.
     Route: 042
     Dates: start: 20171006, end: 20171012
  34. SOL-MELCORT [Suspect]
     Active Substance: METHYLPREDNISOLONE SODIUM SUCCINATE
     Dosage: DOSE INTERVAL UNCERTAINTY
     Route: 042
     Dates: start: 20171024, end: 20171025
  35. CERTICAN [Suspect]
     Active Substance: EVEROLIMUS
     Dosage: DOSE INTERVAL UNCERTAINTY
     Route: 048
     Dates: start: 20171126, end: 20171128
  36. CERTICAN [Suspect]
     Active Substance: EVEROLIMUS
     Dosage: DOSE INTERVAL UNCERTAINTY
     Route: 048
     Dates: start: 20180201
  37. PENTASA [Concomitant]
     Active Substance: MESALAMINE
     Indication: COLITIS ULCERATIVE
     Dosage: DOSAGE IS UNCERTAIN.
     Route: 048
  38. MYCOPHENOLATE MOFETIL. [Suspect]
     Active Substance: MYCOPHENOLATE MOFETIL
     Indication: PROPHYLAXIS AGAINST TRANSPLANT REJECTION
     Route: 048
     Dates: start: 20171001, end: 20171005
  39. RITUXIMAB. [Suspect]
     Active Substance: RITUXIMAB
     Indication: PROPHYLAXIS AGAINST TRANSPLANT REJECTION
     Dosage: DATE OF RECENT DOSE: 04/SEP/2017
     Route: 041
     Dates: start: 20170904
  40. TACROLIMUS. [Suspect]
     Active Substance: TACROLIMUS
     Indication: PROPHYLAXIS AGAINST TRANSPLANT REJECTION
     Dosage: DOSAGE IS UNCERTAIN.
     Route: 048
     Dates: start: 20171001, end: 20171005
  41. SOL-MELCORT [Suspect]
     Active Substance: METHYLPREDNISOLONE SODIUM SUCCINATE
     Dosage: DOSE INTERVAL UNCERTAINTY
     Route: 042
     Dates: start: 20171017, end: 20171017
  42. SOL-MELCORT [Suspect]
     Active Substance: METHYLPREDNISOLONE SODIUM SUCCINATE
     Dosage: DOSE INTERVAL UNCERTAINTY
     Route: 042
     Dates: start: 20171028, end: 20171029
  43. CERTICAN [Suspect]
     Active Substance: EVEROLIMUS
     Dosage: DOSE INTERVAL UNCERTAINTY
     Route: 048
     Dates: start: 20171115, end: 20171119
  44. CERTICAN [Suspect]
     Active Substance: EVEROLIMUS
     Dosage: DOSE INTERVAL UNCERTAINTY
     Route: 048
     Dates: start: 20171226, end: 20180127

REACTIONS (11)
  - Peritonitis [Recovering/Resolving]
  - Suture rupture [Recovering/Resolving]
  - Liver transplant rejection [Not Recovered/Not Resolved]
  - Influenza [Recovering/Resolving]
  - Gastrointestinal anastomotic leak [Recovering/Resolving]
  - Abdominal infection [Recovering/Resolving]
  - Pseudomembranous colitis [Recovering/Resolving]
  - Cytomegalovirus infection [Recovered/Resolved]
  - Hepatic vein stenosis [Recovering/Resolving]
  - Bacteraemia [Recovering/Resolving]
  - Post procedural bile leak [Recovering/Resolving]

NARRATIVE: CASE EVENT DATE: 20171010
